FAERS Safety Report 9459839 (Version 6)
Quarter: 2015Q2

REPORT INFORMATION
  Report Type: Report from Study
  Country: KR (occurrence: KR)
  Receive Date: 20130815
  Receipt Date: 20150626
  Transmission Date: 20150821
  Serious: Yes (Hospitalization)
  Sender: FDA-Public Use
  Company Number: KR-UCBSA-095030

PATIENT
  Age: 58 Year
  Sex: Female
  Weight: 58 kg

DRUGS (15)
  1. METHOTREXATE [Concomitant]
     Active Substance: METHOTREXATE
     Indication: RHEUMATOID ARTHRITIS
     Dosage: 12.5 MG, WEEKLY (QW)
     Route: 048
     Dates: start: 20060221
  2. ATORVASTATIN CALCIUM. [Concomitant]
     Active Substance: ATORVASTATIN CALCIUM
     Indication: HYPERCHOLESTEROLAEMIA
     Route: 048
     Dates: start: 20110118, end: 20111205
  3. DICAMAX D [Concomitant]
     Indication: OSTEOPOROSIS
     Dosage: 1 TAB ONCE DAILY
     Route: 048
     Dates: start: 20130226
  4. PANTOPRAZOLE [Concomitant]
     Active Substance: PANTOPRAZOLE SODIUM
     Dosage: 20 MG, ONCE DAILY (QD)
     Route: 048
     Dates: start: 20111103, end: 20111222
  5. FOLIC ACID. [Concomitant]
     Active Substance: FOLIC ACID
     Indication: PROPHYLAXIS
     Dosage: 1 MG, ONCE DAILY (QD)
     Route: 048
     Dates: start: 20030724
  6. CERTOLIZUMAB PEGOL RA [Suspect]
     Active Substance: CERTOLIZUMAB PEGOL
     Indication: RHEUMATOID ARTHRITIS
     Dosage: NO. OF DOSES RECEIVED: 66
     Route: 058
     Dates: start: 20110131
  7. TRIAMCINOLONE [Concomitant]
     Active Substance: TRIAMCINOLONE
     Dosage: 5 MG, ONCE DAILY (QD)
     Route: 048
     Dates: start: 20131008
  8. CARBOXYMETHYL CELLULOSE [Concomitant]
     Indication: DRY EYE
     Dosage: .4 ML, AS NEEDED (PRN)
     Route: 047
     Dates: start: 20101221
  9. PANTOPRAZOLE [Concomitant]
     Active Substance: PANTOPRAZOLE SODIUM
     Dosage: 20 MG, ONCE DAILY (QD)
     Route: 048
     Dates: start: 20120410
  10. ESOMEPRAZOL MAGNESIUM [Concomitant]
     Indication: GASTROINTESTINAL DISORDER
     Dosage: 20 MG, ONCE DAILY (QD)
     Route: 048
     Dates: start: 20130409
  11. PANTOPRAZOLE [Concomitant]
     Active Substance: PANTOPRAZOLE SODIUM
     Indication: GASTRIC POLYPS
     Dosage: 40 MG, 2X/DAY (BID)
     Route: 048
     Dates: start: 20110802, end: 20110804
  12. SHINTARO DRIED EXTRACT [Concomitant]
     Indication: RHEUMATOID ARTHRITIS
     Dosage: 300 MG, 2X/DAY (BID)
     Route: 048
  13. ATORVASTATIN CALCIUM. [Concomitant]
     Active Substance: ATORVASTATIN CALCIUM
     Dosage: 10 MG, ONCE DAILY (QD)
     Route: 048
     Dates: start: 20120214
  14. PANTOPRAZOLE [Concomitant]
     Active Substance: PANTOPRAZOLE SODIUM
     Indication: GASTROINTESTINAL DISORDER
     Dosage: 20 MG, ONCE DAILY (QD)
     Route: 048
     Dates: start: 20100928, end: 20111010
  15. TRIAMCINOLONE [Concomitant]
     Active Substance: TRIAMCINOLONE
     Indication: RHEUMATOID ARTHRITIS
     Dosage: 6 MG, ONCE DAILY (QD)
     Route: 048
     Dates: start: 20050819

REACTIONS (2)
  - Cellulitis [Recovered/Resolved]
  - Abscess [Recovered/Resolved]

NARRATIVE: CASE EVENT DATE: 20130703
